FAERS Safety Report 17173702 (Version 1)
Quarter: 2019Q4

REPORT INFORMATION
  Report Type: Spontaneous
  Country: US (occurrence: US)
  Receive Date: 20191219
  Receipt Date: 20191219
  Transmission Date: 20200122
  Serious: No
  Sender: FDA-Public Use
  Company Number: US-SUPERNUS PHARMACEUTICALS, INC.-2019SUP00368

PATIENT
  Age: 38 Year
  Sex: Female
  Weight: 90.25 kg

DRUGS (2)
  1. ABILIFY SHOT [Concomitant]
     Dosage: UNK, 1X/MONTH
  2. OXTELLAR XR [Suspect]
     Active Substance: OXCARBAZEPINE
     Indication: MENTAL DISORDER
     Dosage: 600 MG, 1X/DAY
     Route: 048
     Dates: start: 20190131

REACTIONS (4)
  - Heart rate increased [Unknown]
  - Product use in unapproved indication [Not Recovered/Not Resolved]
  - Hypertension [Unknown]
  - Emotional disorder [Unknown]

NARRATIVE: CASE EVENT DATE: 20190131
